FAERS Safety Report 12494454 (Version 1)
Quarter: 2016Q2

REPORT INFORMATION
  Report Type: Spontaneous
  Country: DK (occurrence: FI)
  Receive Date: 20160623
  Receipt Date: 20160623
  Transmission Date: 20160815
  Serious: Yes (Life-Threatening, Hospitalization, Other)
  Sender: FDA-Public Use
  Company Number: FI-FRI-1000085436

PATIENT
  Age: 46 Year
  Sex: Male

DRUGS (9)
  1. CITALOPRAM [Suspect]
     Active Substance: CITALOPRAM HYDROBROMIDE
     Dosage: OVERDOSE: 560 MG (LAST TAKEN DOSE 80 MG DAILY X 7) (PATIENT TOOK 1 WEEK^S DOSE AT ONCE)
     Route: 065
     Dates: start: 201605
  2. TEMESTA [Suspect]
     Active Substance: LORAZEPAM
     Indication: ANXIETY
     Dosage: 1.5 MG
     Route: 065
     Dates: start: 2007
  3. LEPONEX [Suspect]
     Active Substance: CLOZAPINE
     Dosage: OVERDOSE: 2100 MG (PATIENT TOOK 1 WEEK^S DOSE AT ONCE)
     Route: 065
     Dates: start: 201605
  4. CITALOPRAM [Suspect]
     Active Substance: CITALOPRAM HYDROBROMIDE
     Dosage: OVERDOSE: 80 MG DAILY
     Route: 065
  5. CITALOPRAM [Suspect]
     Active Substance: CITALOPRAM HYDROBROMIDE
     Indication: OBSESSIVE-COMPULSIVE SYMPTOM
     Route: 065
     Dates: start: 2006
  6. CITALOPRAM [Suspect]
     Active Substance: CITALOPRAM HYDROBROMIDE
     Route: 065
  7. TEMESTA [Suspect]
     Active Substance: LORAZEPAM
     Dosage: OVERDOSE: 7 MG (PATIENT TOOK 1 WEEK^S DOSE AT ONCE)
     Route: 065
     Dates: start: 201605
  8. LEPONEX [Suspect]
     Active Substance: CLOZAPINE
     Indication: SCHIZOAFFECTIVE DISORDER
     Dosage: 300 MG
     Route: 065
     Dates: start: 2006
  9. TEMESTA [Suspect]
     Active Substance: LORAZEPAM
     Dosage: 1 MG
     Route: 065

REACTIONS (8)
  - Anuria [Not Recovered/Not Resolved]
  - Suicide attempt [Unknown]
  - Suicidal behaviour [Unknown]
  - Loss of consciousness [Unknown]
  - Renal injury [Not Recovered/Not Resolved]
  - Intentional overdose [Unknown]
  - Rhabdomyolysis [Unknown]
  - Prescribed overdose [Unknown]

NARRATIVE: CASE EVENT DATE: 201605
